FAERS Safety Report 6663402-9 (Version None)
Quarter: 2010Q2

REPORT INFORMATION
  Report Type: 
  Country: None (occurrence: None)
  Receive Date: 20100401
  Receipt Date: 20100323
  Transmission Date: 20101027
  Serious: Yes (Other)
  Sender: FDA-Public Use
  Company Number: US-PFIZER INC-2010037370

PATIENT
  Sex: Female
  Weight: 76 kg

DRUGS (10)
  1. LIPITOR [Suspect]
     Indication: BLOOD CHOLESTEROL INCREASED
     Dosage: 20 MG, 1X/DAY
     Route: 048
  2. LIPITOR [Suspect]
     Dosage: 10 MG, 1X/DAY
     Route: 048
  3. NAPROXEN [Concomitant]
     Indication: ARTHRITIS
     Dosage: 500 MG, 2X/DAY
  4. SUCRALFATE [Concomitant]
     Dosage: 1 G, 1X/DAY
  5. ESTRACE [Concomitant]
     Indication: VULVOVAGINAL DRYNESS
     Dosage: DAILY
  6. NEXIUM [Concomitant]
     Indication: GASTROOESOPHAGEAL REFLUX DISEASE
     Dosage: 40 MG, 1X/DAY
  7. SYNTHROID [Concomitant]
     Indication: HYPOTHYROIDISM
     Dosage: 1 MG, 1X/DAY
  8. METOPROLOL [Concomitant]
     Indication: HEART RATE ABNORMAL
     Dosage: 25 MG, 1X/DAY
  9. HYDROCHLOROTHIAZIDE [Concomitant]
     Dosage: 25 MG, 1X/DAY
  10. CYCLOBENZAPRINE [Concomitant]
     Indication: PAIN IN EXTREMITY
     Dosage: 10 MG, 1X/DAY

REACTIONS (3)
  - INSOMNIA [None]
  - PALPITATIONS [None]
  - POOR QUALITY SLEEP [None]
